FAERS Safety Report 9075839 (Version 1)
Quarter: 2013Q1

REPORT INFORMATION
  Report Type: Report from Study
  Country: US (occurrence: US)
  Receive Date: 20130129
  Receipt Date: 20130129
  Transmission Date: 20140127
  Serious: No
  Sender: FDA-Public Use
  Company Number: US-ABBOTT-12P-163-0940248-00

PATIENT
  Sex: Female
  Weight: 54.48 kg

DRUGS (8)
  1. HUMIRA 40 MG/0.8 ML PEN [Suspect]
     Indication: CROHN^S DISEASE
     Dates: start: 201205
  2. HUMIRA 40 MG/0.8 ML PEN [Suspect]
     Indication: COLITIS ULCERATIVE
  3. HUMIRA 40 MG/0.8 ML PEN [Suspect]
  4. PREDNISONE [Concomitant]
     Indication: CROHN^S DISEASE
     Dosage: DECREASING DOSES BY 5MG WEEKLY, DOWN TO 5MG DAILY
     Dates: start: 201203, end: 201205
  5. PREDNISONE [Concomitant]
     Indication: COLITIS ULCERATIVE
     Route: 048
     Dates: end: 201203
  6. 6-MP [Concomitant]
     Indication: CROHN^S DISEASE
  7. 6-MP [Concomitant]
     Indication: COLITIS ULCERATIVE
  8. BONIVA [Concomitant]
     Indication: OSTEOPENIA

REACTIONS (5)
  - Drug ineffective [Not Recovered/Not Resolved]
  - Irritable bowel syndrome [Not Recovered/Not Resolved]
  - Diarrhoea [Not Recovered/Not Resolved]
  - Diarrhoea [Not Recovered/Not Resolved]
  - Off label use [Not Recovered/Not Resolved]
